FAERS Safety Report 9109651 (Version 1)
Quarter: 2013Q1

REPORT INFORMATION
  Report Type: Spontaneous
  Country: DE (occurrence: DE)
  Receive Date: 20130222
  Receipt Date: 20130222
  Transmission Date: 20140127
  Serious: Yes (Other)
  Sender: FDA-Public Use
  Company Number: DE-AMGEN-DEUSP2013011063

PATIENT
  Sex: 0

DRUGS (1)
  1. XGEVA [Suspect]
     Indication: BONE CANCER METASTATIC

REACTIONS (1)
  - Metastases to bone [Unknown]
